FAERS Safety Report 4533317-0 (Version None)
Quarter: 2005Q1

REPORT INFORMATION
  Report Type: 
  Country: None (occurrence: None)
  Receive Date: 20041206
  Receipt Date: 20040827
  Transmission Date: 20050727
  Serious: No
  Sender: FDA-Public Use
  Company Number: USA040876680

PATIENT
  Age: 33 Year
  Sex: Female

DRUGS (1)
  1. CYMBALTA [Suspect]
     Indication: DEPRESSION
     Dosage: 60 MG/1 IN THE EVENING
     Dates: start: 20040826

REACTIONS (3)
  - DRY MOUTH [None]
  - HYPERHIDROSIS [None]
  - NAUSEA [None]
